FAERS Safety Report 8816939 (Version 1)
Quarter: 2012Q4

REPORT INFORMATION
  Report Type: Spontaneous
  Country: US (occurrence: None)
  Receive Date: 20121002
  Receipt Date: 20121002
  Transmission Date: 20130627
  Serious: Yes (Life-Threatening, Hospitalization)
  Sender: FDA-Public Use
  Company Number: None

PATIENT
  Sex: Female
  Weight: 67 kg

DRUGS (1)
  1. AMOXICILLIN [Suspect]
     Indication: SINUSITIS
     Dates: start: 20120518, end: 20120518

REACTIONS (6)
  - Dyspnoea [None]
  - Dizziness [None]
  - Lip swelling [None]
  - Rash [None]
  - Hypoaesthesia [None]
  - Oedema peripheral [None]
